FAERS Safety Report 4288554-X (Version None)
Quarter: 2004Q1

REPORT INFORMATION
  Report Type: 
  Country: None (occurrence: None)
  Receive Date: 20040205
  Receipt Date: 20040122
  Transmission Date: 20041129
  Serious: Yes (Hospitalization, Disabling)
  Sender: FDA-Public Use
  Company Number: 234193

PATIENT
  Age: 53 Year
  Sex: Female
  Weight: 59 kg

DRUGS (4)
  1. TRISEKVENS FORTE (ESTRADIOL HEMIHYDRATE, NORETHISTERONE ACETATE) [Suspect]
     Indication: MENOPAUSAL SYMPTOMS
     Dosage: SEE IMAGE
     Dates: start: 20010220, end: 20020601
  2. TRISEKVENS FORTE (ESTRADIOL HEMIHYDRATE, NORETHISTERONE ACETATE) [Suspect]
     Indication: MENOPAUSAL SYMPTOMS
     Dosage: SEE IMAGE
     Dates: start: 20020703, end: 20030501
  3. NOVOFEM (NORTHISTERONE ACETATE, ESTRADIOL HEMIHYDRATE) FILM COATED, 1. [Suspect]
     Indication: MENOPAUSAL SYMPTOMS
     Dates: start: 20030522
  4. ACTIVELLE (NORETHISTERONE ACETATE, ESTRADIOL HEMIHYDRATE) [Suspect]
     Indication: MENOPAUSAL SYMPTOMS
     Dates: start: 20000101, end: 20030601

REACTIONS (1)
  - BLINDNESS UNILATERAL [None]
